FAERS Safety Report 25429745 (Version 1)
Quarter: 2025Q2

REPORT INFORMATION
  Report Type: Spontaneous
  Country: US (occurrence: US)
  Receive Date: 20250612
  Receipt Date: 20250612
  Transmission Date: 20250716
  Serious: Yes (Life-Threatening)
  Sender: INTERCHEM
  Company Number: US-HQ SPECIALTY-US-2025INT000040

PATIENT
  Age: 18 Year
  Sex: Male

DRUGS (9)
  1. CEFAZOLIN [Suspect]
     Active Substance: CEFAZOLIN
     Indication: Spinal fusion surgery
     Route: 042
  2. MIDAZOLAM [Suspect]
     Active Substance: MIDAZOLAM
     Indication: Spinal fusion surgery
     Route: 048
  3. FENTANYL [Suspect]
     Active Substance: FENTANYL
     Indication: Spinal fusion surgery
     Route: 042
  4. PROPOFOL [Suspect]
     Active Substance: PROPOFOL
     Indication: Spinal fusion surgery
     Route: 042
  5. DEXAMETHASONE [Suspect]
     Active Substance: DEXAMETHASONE
     Indication: Spinal fusion surgery
     Route: 042
  6. REMIFENTANIL [Suspect]
     Active Substance: REMIFENTANIL
     Indication: Spinal fusion surgery
     Route: 042
  7. TRANEXAMIC ACID [Suspect]
     Active Substance: TRANEXAMIC ACID
     Indication: Spinal fusion surgery
     Route: 042
  8. METHADONE [Suspect]
     Active Substance: METHADONE HYDROCHLORIDE
     Indication: Spinal fusion surgery
     Route: 042
  9. CHLORHEXIDINE [Suspect]
     Active Substance: CHLORHEXIDINE
     Indication: Spinal fusion surgery
     Route: 061

REACTIONS (3)
  - Cardiac arrest [Recovered/Resolved]
  - Pulseless electrical activity [Recovered/Resolved]
  - Anaphylactic reaction [Recovered/Resolved]
